FAERS Safety Report 22595144 (Version 1)
Quarter: 2023Q2

REPORT INFORMATION
  Report Type: Spontaneous
  Country: US (occurrence: None)
  Receive Date: 20230612
  Receipt Date: 20230612
  Transmission Date: 20230721
  Serious: Yes (Other)
  Sender: FDA-Public Use
  Company Number: None

PATIENT
  Age: 54 Year
  Sex: Female

DRUGS (12)
  1. HUMIRA [Suspect]
     Active Substance: ADALIMUMAB
     Indication: Crohn^s disease
     Dosage: OTHER QUANTITY : 40MG/0.8ML ;?FREQUENCY : WEEKLY;?
     Route: 058
     Dates: start: 20211012, end: 20230602
  2. ZOFRAN [Concomitant]
     Active Substance: ONDANSETRON HYDROCHLORIDE
  3. METFORMIN [Concomitant]
  4. BENADRYL [Concomitant]
     Active Substance: DIPHENHYDRAMINE HYDROCHLORIDE
  5. MULTI-VITAMIN [Concomitant]
  6. LISINOPRIL [Concomitant]
  7. BALSALAZIDE [Concomitant]
     Active Substance: BALSALAZIDE
  8. AZATHIOPRINE [Concomitant]
  9. BENTYL [Concomitant]
     Active Substance: DICYCLOMINE HYDROCHLORIDE
  10. CARAFATE [Concomitant]
     Active Substance: SUCRALFATE
  11. VITAMIN D [Concomitant]
     Active Substance: VITAMIN D NOS
  12. XANAX [Concomitant]
     Active Substance: ALPRAZOLAM

REACTIONS (2)
  - Infection [None]
  - Therapy cessation [None]

NARRATIVE: CASE EVENT DATE: 20230605
